FAERS Safety Report 7361735-4 (Version None)
Quarter: 2011Q1

REPORT INFORMATION
  Report Type: 
  Country: None (occurrence: None)
  Receive Date: 20110318
  Receipt Date: 20110308
  Transmission Date: 20110831
  Serious: Yes (Other)
  Sender: FDA-Public Use
  Company Number: US-MERCK-1011USA03782

PATIENT
  Age: 75 Year
  Sex: Male

DRUGS (2)
  1. FOSAMAX [Suspect]
     Route: 048
  2. FORTEO [Suspect]
     Route: 065

REACTIONS (4)
  - COLECTOMY [None]
  - GASTROINTESTINAL DISORDER [None]
  - PROSTATE CANCER [None]
  - DRUG INEFFECTIVE [None]
